FAERS Safety Report 13078433 (Version 1)
Quarter: 2017Q1

REPORT INFORMATION
  Report Type: Report from Study
  Country: IT (occurrence: IT)
  Receive Date: 20170102
  Receipt Date: 20170102
  Transmission Date: 20170428
  Serious: Yes (Life-Threatening)
  Sender: FDA-Public Use
  Company Number: IT-TEVA-725220ACC

PATIENT
  Age: 63 Year
  Sex: Male

DRUGS (2)
  1. LITHIUM. [Interacting]
     Active Substance: LITHIUM
     Indication: PSYCHOTIC DISORDER
  2. ESCITALOPRAM OXALATE. [Suspect]
     Active Substance: ESCITALOPRAM OXALATE
     Indication: PSYCHOTIC DISORDER

REACTIONS (5)
  - Rhabdomyolysis [Recovering/Resolving]
  - Labelled drug-drug interaction medication error [Recovering/Resolving]
  - Depressed level of consciousness [Recovering/Resolving]
  - Tremor [Recovering/Resolving]
  - Musculoskeletal stiffness [Recovering/Resolving]
